FAERS Safety Report 4899958-6 (Version None)
Quarter: 2006Q1

REPORT INFORMATION
  Report Type: 
  Country: None (occurrence: None)
  Receive Date: 20060201
  Receipt Date: 20060117
  Transmission Date: 20060701
  Serious: Yes (Other)
  Sender: FDA-Public Use
  Company Number: US200601002871

PATIENT
  Age: 30 Year
  Sex: Female

DRUGS (6)
  1. CYMBALTA [Suspect]
     Indication: DEPRESSION
     Dates: start: 20050501, end: 20051201
  2. PROPRANOLOL [Concomitant]
  3. KLONOPIN [Concomitant]
  4. REQUIP [Concomitant]
  5. PREVACID [Concomitant]
  6. REGLAN / USA / (METOCLOPRAMIDE HYDROCHLORIDE) [Concomitant]

REACTIONS (5)
  - ABDOMINAL PAIN [None]
  - GASTROINTESTINAL DISORDER [None]
  - HEPATIC STEATOSIS [None]
  - RENAL DISORDER [None]
  - VOMITING [None]
